FAERS Safety Report 4944660-5 (Version None)
Quarter: 2006Q1

REPORT INFORMATION
  Report Type: 
  Country: None (occurrence: None)
  Receive Date: 20060315
  Receipt Date: 20060307
  Transmission Date: 20060701
  Serious: Yes (Disabling)
  Sender: FDA-Public Use
  Company Number: ZA-BRISTOL-MYERS SQUIBB COMPANY-13305925

PATIENT
  Age: 52 Year
  Sex: Female

DRUGS (2)
  1. PACLITAXEL [Suspect]
     Indication: BREAST CANCER METASTATIC
     Route: 042
     Dates: start: 20041001
  2. PLACEBO [Suspect]
     Indication: BREAST CANCER METASTATIC
     Route: 048
     Dates: start: 20041001

REACTIONS (1)
  - EJECTION FRACTION DECREASED [None]
